FAERS Safety Report 6445217-X (Version None)
Quarter: 2009Q4

REPORT INFORMATION
  Report Type: 
  Country: None (occurrence: None)
  Receive Date: 20091118
  Receipt Date: 20091113
  Transmission Date: 20100525
  Serious: Yes (Other)
  Sender: FDA-Public Use
  Company Number: CHPA2009FR20272

PATIENT
  Age: 55 Year
  Sex: Female

DRUGS (4)
  1. NICOTINELL TTS (NCH) [Suspect]
     Indication: SMOKING CESSATION THERAPY
     Dosage: 14 MG, QD
     Route: 062
     Dates: start: 20090905, end: 20090930
  2. NICOTINELL TTS (NCH) [Suspect]
     Dosage: 7 MG, 24 HOURS
     Dates: start: 20091005, end: 20091006
  3. TRIATEC [Concomitant]
     Dosage: 10 MG, QD
  4. TEMERIT [Concomitant]
     Dosage: 5 MG, QD

REACTIONS (5)
  - ANGINA PECTORIS [None]
  - BLOOD PRESSURE INCREASED [None]
  - ELECTROCARDIOGRAM AMBULATORY ABNORMAL [None]
  - FAMILY STRESS [None]
  - FEELING ABNORMAL [None]
